FAERS Safety Report 15885302 (Version 1)
Quarter: 2019Q1

REPORT INFORMATION
  Report Type: Spontaneous
  Country: FR (occurrence: FR)
  Receive Date: 20190129
  Receipt Date: 20190129
  Transmission Date: 20190417
  Serious: Yes (Hospitalization)
  Sender: FDA-Public Use
  Company Number: FR-PROVELL PHARMACEUTICALS-2061878

PATIENT
  Age: 55 Year
  Sex: Female
  Weight: 67 kg

DRUGS (1)
  1. EUTHYROX [Suspect]
     Active Substance: LEVOTHYROXINE SODIUM
     Indication: HYPOTHYROIDISM
     Route: 048
     Dates: start: 20170624, end: 201802

REACTIONS (10)
  - Asthenia [Recovered/Resolved]
  - Pulmonary embolism [Recovered/Resolved]
  - Blood thyroid stimulating hormone increased [Recovered/Resolved]
  - Muscle spasms [Recovered/Resolved]
  - Hot flush [Recovered/Resolved]
  - Deep vein thrombosis [Recovered/Resolved]
  - Abnormal weight gain [Recovered/Resolved]
  - Depression [Recovered/Resolved]
  - Vertigo [Recovered/Resolved]
  - Blood thyroid stimulating hormone decreased [Recovered/Resolved]

NARRATIVE: CASE EVENT DATE: 20170728
